FAERS Safety Report 6145082-4 (Version None)
Quarter: 2009Q2

REPORT INFORMATION
  Report Type: 
  Country: None (occurrence: None)
  Receive Date: 20090406
  Receipt Date: 20090327
  Transmission Date: 20091009
  Serious: No
  Sender: FDA-Public Use
  Company Number: A0758966A

PATIENT
  Age: 77 Year
  Sex: Female
  Weight: 79.5 kg

DRUGS (4)
  1. ADVAIR HFA [Suspect]
     Indication: ASTHMA
     Dosage: 1PUFF TWICE PER DAY
     Route: 055
     Dates: start: 20060101
  2. ADVAIR HFA [Suspect]
     Route: 055
     Dates: start: 20000101, end: 20050101
  3. COUMADIN [Concomitant]
  4. COMBIVENT [Concomitant]

REACTIONS (5)
  - CHEST DISCOMFORT [None]
  - COUGH [None]
  - EPISTAXIS [None]
  - PEAK EXPIRATORY FLOW RATE DECREASED [None]
  - PRODUCT QUALITY ISSUE [None]
